FAERS Safety Report 22252269 (Version 1)
Quarter: 2023Q2

REPORT INFORMATION
  Report Type: Report from Study
  Country: CO (occurrence: CO)
  Receive Date: 20230426
  Receipt Date: 20230426
  Transmission Date: 20230721
  Serious: Yes (Other)
  Sender: FDA-Public Use
  Company Number: CO-ABBVIE-4740889

PATIENT
  Age: 78 Year
  Sex: Male
  Weight: 60 kg

DRUGS (3)
  1. HUMIRA [Suspect]
     Active Substance: ADALIMUMAB
     Indication: Psoriasis
     Route: 058
     Dates: start: 20201105
  2. NAPROXEN [Concomitant]
     Active Substance: NAPROXEN
     Indication: Pain in extremity
     Route: 048
     Dates: start: 202304
  3. DICLOFENAC [Concomitant]
     Active Substance: DICLOFENAC
     Indication: Pain in extremity
     Route: 048
     Dates: start: 202304

REACTIONS (4)
  - Hand fracture [Unknown]
  - Pain in extremity [Not Recovered/Not Resolved]
  - Road traffic accident [Unknown]
  - Limb injury [Unknown]

NARRATIVE: CASE EVENT DATE: 20230409
